FAERS Safety Report 8104097-7 (Version None)
Quarter: 2012Q1

REPORT INFORMATION
  Report Type: 
  Country: None (occurrence: None)
  Receive Date: 20120130
  Receipt Date: 20120120
  Transmission Date: 20120608
  Serious: Yes (Hospitalization)
  Sender: FDA-Public Use
  Company Number: US-ABBOTT-11P-163-0884578-00

PATIENT
  Sex: Male
  Weight: 110.78 kg

DRUGS (28)
  1. PREDNISONE TAB [Concomitant]
     Indication: LUNG TRANSPLANT
     Dosage: 5MG DAILY, EVERY MORNING
     Route: 048
  2. MAGNESIUM OXIDE [Concomitant]
     Indication: PRODUCT USED FOR UNKNOWN INDICATION
     Dosage: (241MG ELEMENTAL MG)
     Route: 048
  3. TEMAZEPAM [Concomitant]
     Indication: INSOMNIA
     Dosage: EVERY EVENING AS NEEDED
     Route: 048
  4. PRAVASTATIN [Concomitant]
     Indication: PRODUCT USED FOR UNKNOWN INDICATION
     Dosage: AT BEDTIME
     Route: 048
  5. CHOLECALCIFEROL [Concomitant]
     Indication: PRODUCT USED FOR UNKNOWN INDICATION
     Route: 048
  6. ATROVENT [Concomitant]
     Indication: RESPIRATORY TRACT CONGESTION
     Dosage: 2 SPRAYS EVERY 4 HOURS AS NEEDED
     Route: 045
  7. TOBRAMYCIN [Concomitant]
     Indication: PRODUCT USED FOR UNKNOWN INDICATION
     Dosage: 300MG BY NEBULIZER EVERY 12 HOURS
     Route: 055
  8. BUPROPION HCL [Concomitant]
     Indication: PRODUCT USED FOR UNKNOWN INDICATION
     Route: 048
  9. FLOMAX [Concomitant]
     Indication: PRODUCT USED FOR UNKNOWN INDICATION
     Dosage: EVERY DAY
     Route: 048
  10. ACETYLCYSTEINE [Concomitant]
     Indication: PRODUCT USED FOR UNKNOWN INDICATION
     Dosage: 10%(100 MG/ML) BY NEBULIZER BID
     Route: 055
  11. MYCOPHENOLATE MOFETIL [Concomitant]
     Indication: PRODUCT USED FOR UNKNOWN INDICATION
     Route: 048
  12. ALBUTEROL [Concomitant]
     Indication: DYSPNOEA
     Dosage: INHALED IN MOUTH QID, AS NEEDED
     Route: 048
  13. FLOVENT HFA [Concomitant]
     Indication: PRODUCT USED FOR UNKNOWN INDICATION
     Dosage: 220 MCG INHALED INTO MOUTH BID
     Route: 048
  14. HUMIRA [Suspect]
     Indication: CROHN'S DISEASE
     Route: 058
     Dates: start: 20100201
  15. MYCOPHENOLATE MOFETIL (CELLCEPT) [Concomitant]
     Indication: LUNG TRANSPLANT
  16. CALCIUM CARBONATE [Concomitant]
     Indication: PRODUCT USED FOR UNKNOWN INDICATION
     Route: 048
  17. PAROXETINE [Concomitant]
     Indication: PRODUCT USED FOR UNKNOWN INDICATION
     Route: 048
  18. OMEPRAZOLE [Concomitant]
     Indication: PRODUCT USED FOR UNKNOWN INDICATION
     Dosage: EVERY DAY
     Route: 048
  19. TRIMETHOPRIM + SULFAMETHOXAZOLE [Concomitant]
     Indication: PRODUCT USED FOR UNKNOWN INDICATION
     Dosage: DOUBLE STRENGTH (MON, WED, FRI)
     Route: 048
  20. BUDESONIDE/FORMOTEROL [Concomitant]
     Indication: PRODUCT USED FOR UNKNOWN INDICATION
     Dosage: 2 - INHALED INTO MOUTH BID
     Route: 055
  21. HUMIRA [Suspect]
     Route: 050
  22. MS CONTIN [Concomitant]
     Indication: PAIN
     Dosage: EVERY DAY AS NEEDED
     Route: 048
  23. TACROLIMUS [Concomitant]
     Indication: PRODUCT USED FOR UNKNOWN INDICATION
     Route: 048
  24. ALBUTEROL [Concomitant]
     Dosage: BY NEBULIZER EVERY 4 HOURS, AS NEEDED
     Route: 055
  25. PULMOZYME [Concomitant]
     Indication: PRODUCT USED FOR UNKNOWN INDICATION
     Dosage: 2.5 MG BY NEBULIZER BID
     Route: 055
  26. SOTALOL HCL [Concomitant]
     Indication: PRODUCT USED FOR UNKNOWN INDICATION
  27. PROGRAF [Concomitant]
     Indication: LUNG TRANSPLANT
  28. METRONIDAZOLE [Concomitant]
     Indication: PRODUCT USED FOR UNKNOWN INDICATION
     Dosage: ON TOP OF SKIN TWO TIMES A DAY
     Route: 061

REACTIONS (11)
  - PYREXIA [None]
  - COUGH [None]
  - LOBAR PNEUMONIA [None]
  - TREMOR [None]
  - FATIGUE [None]
  - DIARRHOEA [None]
  - CHILLS [None]
  - OXYGEN SATURATION DECREASED [None]
  - DEVICE DISLOCATION [None]
  - DYSPNOEA [None]
  - HEPATIC NEOPLASM MALIGNANT [None]
